FAERS Safety Report 14472890 (Version 1)
Quarter: 2018Q1

REPORT INFORMATION
  Report Type: Report from Study
  Country: BR (occurrence: BR)
  Receive Date: 20180201
  Receipt Date: 20180201
  Transmission Date: 20180509
  Serious: Yes (Hospitalization)
  Sender: FDA-Public Use
  Company Number: BR-UCBSA-2018002992

PATIENT
  Age: 19 Year
  Sex: Female

DRUGS (2)
  1. TEGRETOL [Concomitant]
     Active Substance: CARBAMAZEPINE
     Indication: PRODUCT USED FOR UNKNOWN INDICATION
     Dosage: UNK
  2. LEVETIRACETAM. [Suspect]
     Active Substance: LEVETIRACETAM
     Indication: EPILEPSY
     Dosage: UNK UNK, 2X/DAY (BID)
     Route: 048
     Dates: start: 201707

REACTIONS (2)
  - Wrong technique in product usage process [Unknown]
  - Surgery [Recovered/Resolved]

NARRATIVE: CASE EVENT DATE: 201707
